FAERS Safety Report 25237472 (Version 1)
Quarter: 2025Q2

REPORT INFORMATION
  Report Type: Report from Study
  Country: US (occurrence: US)
  Receive Date: 20250425
  Receipt Date: 20250425
  Transmission Date: 20250717
  Serious: Yes (Other)
  Sender: ABBVIE
  Company Number: US-ABBVIE-6244443

PATIENT
  Age: 72 Year
  Sex: Male

DRUGS (1)
  1. HUMIRA [Suspect]
     Active Substance: ADALIMUMAB
     Indication: Colitis ulcerative
     Route: 058
     Dates: start: 20181025

REACTIONS (4)
  - Retinal vascular occlusion [Unknown]
  - Intestinal obstruction [Recovering/Resolving]
  - Sleep disorder [Unknown]
  - Stress [Unknown]

NARRATIVE: CASE EVENT DATE: 20230101
